FAERS Safety Report 5492522-X (Version None)
Quarter: 2007Q4

REPORT INFORMATION
  Report Type: 
  Country: None (occurrence: None)
  Receive Date: 20071022
  Receipt Date: 20071015
  Transmission Date: 20080405
  Serious: Yes (Other)
  Sender: FDA-Public Use
  Company Number: US-SHR-US-2007-039172

PATIENT
  Age: 26 Year
  Sex: Female
  Weight: 91 kg

DRUGS (2)
  1. YAZ [Suspect]
     Dosage: 1 TAB(S), 1X/DAY
     Route: 048
     Dates: start: 20070430, end: 20070927
  2. EFFEXOR [Concomitant]
     Dosage: 150 UNK, 1X/DAY
     Route: 048
     Dates: start: 20060801

REACTIONS (2)
  - HEADACHE [None]
  - PAPILLOEDEMA [None]
